FAERS Safety Report 8069166 (Version 3)
Quarter: 2012Q4

REPORT INFORMATION
  Report Type: 
  Country: US (occurrence: US)
  Receive Date: 20110804
  Receipt Date: 20121107
  Transmission Date: 20130627
  Serious: Yes (Other)
  Sender: FDA-Public Use
  Company Number: US-ROCHE-772649

PATIENT
  Age: 17 None
  Sex: Male
  Weight: 74.8 kg

DRUGS (4)
  1. ACCUTANE [Suspect]
     Indication: ACNE
     Route: 065
     Dates: start: 20070522, end: 200706
  2. ACCUTANE [Suspect]
     Indication: ACNE
     Route: 065
     Dates: start: 2008, end: 2008
  3. CLARAVIS [Suspect]
     Indication: ACNE
     Dosage: 40 mg alternating with 80 mg.
     Route: 065
     Dates: start: 200706, end: 200712
  4. CLARAVIS [Suspect]
     Route: 065
     Dates: start: 2008, end: 2008

REACTIONS (10)
  - Crohn^s disease [Unknown]
  - Inflammatory bowel disease [Unknown]
  - Emotional distress [Not Recovered/Not Resolved]
  - Depression [Unknown]
  - Anal fistula [Unknown]
  - Neck pain [Unknown]
  - Arthralgia [Unknown]
  - Dry skin [Unknown]
  - Infected dermal cyst [Unknown]
  - Epistaxis [Unknown]
